FAERS Safety Report 8417944 (Version 2)
Quarter: 2013Q1

REPORT INFORMATION
  Report Type: Report from Study
  Country: IT (occurrence: IT)
  Receive Date: 20120221
  Receipt Date: 20130219
  Transmission Date: 20140127
  Serious: Yes (Hospitalization)
  Sender: FDA-Public Use
  Company Number: IT-JNJFOC-20120206045

PATIENT
  Age: 64 Year
  Sex: Male

DRUGS (14)
  1. ABIRATERONE ACETATE [Suspect]
     Route: 048
  2. ABIRATERONE ACETATE [Suspect]
     Indication: PROSTATE CANCER
     Route: 048
     Dates: start: 20111228, end: 20120202
  3. PREDNISONE [Suspect]
     Indication: PROSTATE CANCER METASTATIC
     Route: 048
     Dates: start: 20111214
  4. PLAUNAZIDE [Concomitant]
     Route: 048
     Dates: start: 20110103
  5. OXYCONTIN [Concomitant]
     Indication: PAIN
     Route: 048
  6. LIMPIDEX [Concomitant]
     Indication: GASTROINTESTINAL DISORDER THERAPY
     Dates: start: 20110913
  7. MOVICOL [Concomitant]
     Indication: CONSTIPATION
     Route: 048
     Dates: start: 20111130
  8. PURSENNID [Concomitant]
     Indication: CONSTIPATION
     Route: 048
     Dates: start: 20111214
  9. IRON PREPARATION [Concomitant]
     Route: 048
     Dates: start: 20111214
  10. DIBASE [Concomitant]
     Route: 048
  11. CALCIUM SANDOZ FORTISSIMUM [Concomitant]
     Route: 048
  12. LIMICAN [Concomitant]
     Indication: NAUSEA
     Route: 048
  13. VOLTAREN [Concomitant]
     Indication: PAIN
     Route: 048
  14. VOLTAREN [Concomitant]
     Indication: PAIN
     Route: 030

REACTIONS (2)
  - Anaemia [Unknown]
  - Haematuria [Unknown]
